FAERS Safety Report 13831364 (Version 1)
Quarter: 2017Q3

REPORT INFORMATION
  Report Type: Spontaneous
  Country: US (occurrence: US)
  Receive Date: 20170803
  Receipt Date: 20170803
  Transmission Date: 20171127
  Serious: Yes (Life-Threatening, Hospitalization)
  Sender: FDA-Public Use
  Company Number: PHHY2017US114489

PATIENT
  Age: 30 Year
  Sex: Male

DRUGS (2)
  1. AMLODIPINE [Suspect]
     Active Substance: AMLODIPINE BESYLATE
     Indication: PRODUCT USED FOR UNKNOWN INDICATION
     Route: 048
  2. AMLODIPINE [Suspect]
     Active Substance: AMLODIPINE BESYLATE
     Dosage: INGESTED 20 TABLETS INTENTIONALLY
     Route: 048

REACTIONS (6)
  - Dyspnoea [Unknown]
  - Hypoxia [Unknown]
  - Dizziness [Unknown]
  - Intentional overdose [Unknown]
  - Non-cardiogenic pulmonary oedema [Unknown]
  - Hypotension [Unknown]
